FAERS Safety Report 24059828 (Version 1)
Quarter: 2024Q3

REPORT INFORMATION
  Report Type: Spontaneous
  Country: US (occurrence: None)
  Receive Date: 20240704
  Receipt Date: 20240704
  Transmission Date: 20241017
  Serious: No
  Sender: Public
  Company Number: None

PATIENT
  Age: 66 Year
  Sex: Female
  Weight: 82.35 kg

DRUGS (8)
  1. RECLAST [Suspect]
     Active Substance: ZOLEDRONIC ACID
     Indication: Osteoporosis
     Dosage: OTHER FREQUENCY : ONCE/YEAR?
     Route: 042
     Dates: start: 20230701, end: 20240701
  2. Spinal stimulator [Concomitant]
  3. XELODA [Concomitant]
     Active Substance: CAPECITABINE
  4. LISINOPRIL [Concomitant]
     Active Substance: LISINOPRIL
  5. ACYCLOVIR [Concomitant]
     Active Substance: ACYCLOVIR
  6. TRAZODONE [Concomitant]
     Active Substance: TRAZODONE HYDROCHLORIDE
  7. Fioricett [Concomitant]
  8. Gabipentin [Concomitant]

REACTIONS (19)
  - Infusion related reaction [None]
  - Bone pain [None]
  - Nausea [None]
  - Pyrexia [None]
  - Hyperhidrosis [None]
  - Hypophagia [None]
  - Vomiting [None]
  - Pain in extremity [None]
  - Pain in extremity [None]
  - Arthralgia [None]
  - Headache [None]
  - Neck pain [None]
  - Arthralgia [None]
  - Diarrhoea [None]
  - Musculoskeletal chest pain [None]
  - Gait disturbance [None]
  - Abdominal discomfort [None]
  - Hypersomnia [None]
  - Urine output decreased [None]

NARRATIVE: CASE EVENT DATE: 20230701
